FAERS Safety Report 5132291-6 (Version None)
Quarter: 2006Q4

REPORT INFORMATION
  Report Type: 
  Country: None (occurrence: None)
  Receive Date: 20061019
  Receipt Date: 20061019
  Transmission Date: 20070319
  Serious: Yes (Hospitalization)
  Sender: FDA-Public Use
  Company Number: None

PATIENT
  Age: 84 Year
  Sex: Male
  Weight: 93.2 kg

DRUGS (14)
  1. ALPHAGAN [Suspect]
  2. PREDNISOLONE ACETATE [Concomitant]
  3. EZOLANZAPINE [Concomitant]
  4. DILTIAZEM HCL [Concomitant]
  5. VALSARTAN [Concomitant]
  6. BISACODYL [Concomitant]
  7. COLCHICINE [Concomitant]
  8. HYDRALAZINE HCL [Concomitant]
  9. ACETAMINOPHEN [Concomitant]
  10. CARBIDOPA AND LEVODOPA [Concomitant]
  11. MIRTAZAPINE [Concomitant]
  12. TRAVOPROST [Concomitant]
  13. NITROGLYCERIN [Concomitant]
  14. ASPIRIN [Concomitant]

REACTIONS (1)
  - FACE OEDEMA [None]
